FAERS Safety Report 5085044-1 (Version None)
Quarter: 2006Q3

REPORT INFORMATION
  Report Type: 
  Country: None (occurrence: None)
  Receive Date: 20060815
  Receipt Date: 20060731
  Transmission Date: 20061208
  Serious: Yes (Hospitalization, Other)
  Sender: FDA-Public Use
  Company Number: US200608000121

PATIENT
  Age: 72 Year
  Sex: Male

DRUGS (11)
  1. HUMALOG PEN [Suspect]
     Indication: DIABETES MELLITUS NON-INSULIN-DEPENDENT
     Dosage: 14, 2/D
     Dates: end: 20060622
  2. HUMULIN R [Suspect]
     Indication: DIABETES MELLITUS NON-INSULIN-DEPENDENT
     Dates: start: 20060627
  3. SPIRONOLACTONE [Concomitant]
  4. TRICOR [Concomitant]
  5. COUMADIN [Concomitant]
  6. OMEPRAZOLE [Concomitant]
  7. ASPIRIN [Concomitant]
  8. CARVEDILOL [Concomitant]
  9. SERTRALINE [Concomitant]
  10. FUROSEMIDE [Concomitant]
  11. LANTUS [Concomitant]

REACTIONS (7)
  - BLOOD GLUCOSE FLUCTUATION [None]
  - CARDIAC ARREST [None]
  - CARDIAC PACEMAKER INSERTION [None]
  - COMA [None]
  - CORONARY ARTERY OCCLUSION [None]
  - IMPLANTABLE DEFIBRILLATOR INSERTION [None]
  - PHARMACEUTICAL PRODUCT COMPLAINT [None]
